FAERS Safety Report 6315545-7 (Version None)
Quarter: 2009Q3

REPORT INFORMATION
  Report Type: 
  Country: None (occurrence: None)
  Receive Date: 20090818
  Receipt Date: 20090806
  Transmission Date: 20100115
  Serious: Yes (Disabling, Other)
  Sender: FDA-Public Use
  Company Number: 349878

PATIENT
  Sex: Female

DRUGS (1)
  1. METHOTREXATE [Suspect]
     Indication: BURKITT'S LYMPHOMA
     Dosage: INTRATHECAL
     Route: 037

REACTIONS (5)
  - FAECAL INCONTINENCE [None]
  - GAIT DISTURBANCE [None]
  - PARALYSIS [None]
  - SPINAL CORD COMPRESSION [None]
  - URINARY INCONTINENCE [None]
